FAERS Safety Report 6694349-X (Version None)
Quarter: 2010Q2

REPORT INFORMATION
  Report Type: 
  Country: None (occurrence: None)
  Receive Date: 20100423
  Receipt Date: 20100414
  Transmission Date: 20101027
  Serious: Yes (Hospitalization, Other)
  Sender: FDA-Public Use
  Company Number: US-AMGEN-QUU397832

PATIENT
  Sex: Male
  Weight: 65.8 kg

DRUGS (14)
  1. NPLATE [Suspect]
     Indication: IDIOPATHIC THROMBOCYTOPENIC PURPURA
     Route: 058
     Dates: start: 20081106, end: 20100119
  2. CORTICOSTEROIDS [Concomitant]
     Dates: start: 20060101
  3. IMDUR [Concomitant]
     Dates: start: 20091001
  4. LASIX [Concomitant]
  5. ASPIRIN [Concomitant]
  6. LYRICA [Concomitant]
  7. PREDNISOLONE [Concomitant]
  8. LIPITOR [Concomitant]
  9. RANEXA [Concomitant]
  10. NITROSTAT [Concomitant]
  11. COREG [Concomitant]
  12. SENOKOT [Concomitant]
  13. ZESTRIL [Concomitant]
  14. FOLIC ACID [Concomitant]

REACTIONS (6)
  - ACUTE MYOCARDIAL INFARCTION [None]
  - ANGINA UNSTABLE [None]
  - ATRIAL FIBRILLATION [None]
  - CARDIAC FAILURE CONGESTIVE [None]
  - SKIN CANCER [None]
  - TRANSIENT ISCHAEMIC ATTACK [None]
